FAERS Safety Report 8426191-3 (Version None)
Quarter: 2012Q2

REPORT INFORMATION
  Report Type: 
  Country: None (occurrence: None)
  Receive Date: 20120323
  Receipt Date: 20110725
  Transmission Date: 20120825
  Serious: Yes (Hospitalization)
  Sender: FDA-Public Use
  Company Number: 163-21880-11043108

PATIENT
  Age: 80 Year
  Sex: Female

DRUGS (13)
  1. LOVASTATIN [Concomitant]
  2. PREDNISONE TAB [Concomitant]
  3. COUMADIN [Concomitant]
  4. LASIX [Concomitant]
  5. EXJADE [Concomitant]
  6. ANTIBIOTICS (ANTIBIOTICS) [Concomitant]
  7. PROTONIX [Concomitant]
  8. ARIMIDEX [Concomitant]
  9. CARDIZEM [Concomitant]
  10. TRICOR [Concomitant]
  11. LEVODOPA (LEVODOPA) [Concomitant]
  12. CARBIDOPA (CARBIDOPA) [Concomitant]
  13. REVLIMID [Suspect]
     Indication: MULTIPLE MYELOMA
     Dosage: 10 MG, DAILY X 21 DAYS, PO
     Route: 048
     Dates: start: 20110201, end: 20110419

REACTIONS (3)
  - WHITE BLOOD CELL COUNT DECREASED [None]
  - NEUTROPENIA [None]
  - PNEUMONIA [None]
